FAERS Safety Report 12095261 (Version 1)
Quarter: 2016Q1

REPORT INFORMATION
  Report Type: Spontaneous
  Country: US (occurrence: US)
  Receive Date: 20160219
  Receipt Date: 20160219
  Transmission Date: 20160526
  Serious: Yes (Hospitalization, Other)
  Sender: FDA-Public Use
  Company Number: US-GLAXOSMITHKLINE-US2016GSK024238

PATIENT
  Age: 39 Year
  Sex: Female

DRUGS (3)
  1. EPOPROSTENOL. [Suspect]
     Active Substance: EPOPROSTENOL
     Indication: PRODUCT USED FOR UNKNOWN INDICATION
     Dosage: DOSE WAS TITRATED UP PROGRESSIVELY OVER YEARS
  2. PREDNISONE. [Concomitant]
     Active Substance: PREDNISONE
     Indication: ALVEOLITIS ALLERGIC
     Dosage: 20 MG, QD
  3. PREDNISONE. [Concomitant]
     Active Substance: PREDNISONE
     Indication: INTERSTITIAL LUNG DISEASE
     Dosage: 60 UNK, UNK

REACTIONS (5)
  - Dyspnoea [Recovering/Resolving]
  - Hyperthyroidism [Recovering/Resolving]
  - Thyroiditis [Recovering/Resolving]
  - Goitre [Recovering/Resolving]
  - Palpitations [Unknown]
